FAERS Safety Report 19428005 (Version 1)
Quarter: 2021Q2

REPORT INFORMATION
  Report Type: Spontaneous
  Country: US (occurrence: US)
  Receive Date: 20210617
  Receipt Date: 20210617
  Transmission Date: 20210717
  Serious: Yes (Other)
  Sender: FDA-Public Use
  Company Number: US-BAYER-2021-155968

PATIENT
  Age: 23 Year

DRUGS (1)
  1. JIVI [Suspect]
     Active Substance: DAMOCTOCOG ALFA PEGOL
     Indication: FACTOR VIII DEFICIENCY
     Dosage: 47 U/KG 1?2 TIMES A WEEK

REACTIONS (3)
  - Haemarthrosis [None]
  - Product dose omission issue [None]
  - Traumatic haemorrhage [None]
